FAERS Safety Report 10162228 (Version 2)
Quarter: 2014Q4

REPORT INFORMATION
  Report Type: Spontaneous
  Country: AU (occurrence: AU)
  Receive Date: 20140509
  Receipt Date: 20141222
  Transmission Date: 20150528
  Serious: Yes (Other)
  Sender: FDA-Public Use
  Company Number: AU-DRREDDYS-USA/AUS/14/0040154

PATIENT
  Age: 69 Year
  Sex: Female

DRUGS (1)
  1. ANASTROZOLE. [Suspect]
     Active Substance: ANASTROZOLE
     Indication: INVASIVE LOBULAR BREAST CARCINOMA
     Route: 048

REACTIONS (5)
  - Headache [Recovered/Resolved]
  - Urticaria [Recovered/Resolved]
  - Arthralgia [Recovered/Resolved]
  - Hypersensitivity vasculitis [Recovered/Resolved]
  - Hyperhidrosis [Recovered/Resolved]
